FAERS Safety Report 4912963-6 (Version None)
Quarter: 2006Q1

REPORT INFORMATION
  Report Type: 
  Country: None (occurrence: None)
  Receive Date: 20060210
  Receipt Date: 20060127
  Transmission Date: 20060701
  Serious: Yes (Death)
  Sender: FDA-Public Use
  Company Number: L05-USA-03935-44

PATIENT
  Age: 52 Year
  Sex: Female

DRUGS (5)
  1. ESCITALOPRAM OXALATE [Suspect]
  2. BUPROPION HCL [Suspect]
     Dosage: 75 MG
  3. PAROXETINE HCL [Suspect]
     Dosage: 30 MG
  4. AMPHETAMINES [Suspect]
  5. BENZODIAZEPINES [Suspect]

REACTIONS (15)
  - ACUTE RESPIRATORY DISTRESS SYNDROME [None]
  - ANURIA [None]
  - BRAIN HERNIATION [None]
  - COMPLETED SUICIDE [None]
  - CONVULSION [None]
  - DISSEMINATED INTRAVASCULAR COAGULATION [None]
  - DRUG SCREEN POSITIVE [None]
  - HAEMORRHAGE INTRACRANIAL [None]
  - HALLUCINATION [None]
  - HYPOTENSION [None]
  - MULTI-ORGAN FAILURE [None]
  - MULTIPLE DRUG OVERDOSE INTENTIONAL [None]
  - PUPIL FIXED [None]
  - TACHYCARDIA [None]
  - TREMOR [None]
